FAERS Safety Report 9088155 (Version 1)
Quarter: 2013Q1

REPORT INFORMATION
  Report Type: Report from Study
  Country: US (occurrence: US)
  Receive Date: 20130201
  Receipt Date: 20130201
  Transmission Date: 20140127
  Serious: No
  Sender: FDA-Public Use
  Company Number: US-ABBOTT-12P-163-1020666-00

PATIENT
  Age: 41 Year
  Sex: Female

DRUGS (10)
  1. HUMIRA [Suspect]
     Indication: PSORIATIC ARTHROPATHY
     Route: 058
     Dates: start: 20121123
  2. HUMIRA [Suspect]
  3. VALTREX [Concomitant]
  4. VITAMIN D [Concomitant]
  5. VITAMIN C [Concomitant]
  6. B-12 [Concomitant]
  7. MEGA 369 [Concomitant]
  8. TRIPHALA [Concomitant]
  9. BIOTIN [Concomitant]
  10. B-1 [Concomitant]

REACTIONS (2)
  - Inappropriate schedule of drug administration [Recovered/Resolved]
  - Ear infection [Recovered/Resolved]
